FAERS Safety Report 23541649 (Version 1)
Quarter: 2024Q1

REPORT INFORMATION
  Report Type: Report from Study
  Country: US (occurrence: US)
  Receive Date: 20240219
  Receipt Date: 20240219
  Transmission Date: 20240409
  Serious: Yes (Hospitalization)
  Sender: FDA-Public Use
  Company Number: US-ABBVIE-5644332

PATIENT
  Sex: Female

DRUGS (2)
  1. RINVOQ [Suspect]
     Active Substance: UPADACITINIB
     Indication: Psoriatic arthropathy
     Dosage: - FORM STRENGTH: 15 MILLIGRAM LAST ADMIN DATE 2023
     Route: 048
     Dates: start: 20230111
  2. RINVOQ [Suspect]
     Active Substance: UPADACITINIB
     Indication: Psoriatic arthropathy
     Route: 048

REACTIONS (5)
  - Toe amputation [Unknown]
  - Pain [Not Recovered/Not Resolved]
  - Blister [Unknown]
  - Blood immunoglobulin G decreased [Unknown]
  - Infection [Unknown]

NARRATIVE: CASE EVENT DATE: 20230101
